FAERS Safety Report 21470931 (Version 2)
Quarter: 2022Q4

REPORT INFORMATION
  Report Type: Report from Study
  Country: TR (occurrence: TR)
  Receive Date: 20221018
  Receipt Date: 20221101
  Transmission Date: 20230113
  Serious: Yes (Other)
  Sender: FDA-Public Use
  Company Number: TR-ABBVIE-4163329

PATIENT
  Sex: Female

DRUGS (8)
  1. CARBIDOPA\LEVODOPA [Suspect]
     Active Substance: CARBIDOPA\LEVODOPA
     Indication: Parkinson^s disease
     Dosage: MORNING DOSE (ML): 8.00 CONTINIOUS DOSE (ML): 2.60 EXTRA DOSE (ML): 1.00
     Route: 050
     Dates: start: 20221010
  2. CARBIDOPA\LEVODOPA [Suspect]
     Active Substance: CARBIDOPA\LEVODOPA
  3. Ceftriaxone (EQICEFT) [Concomitant]
     Indication: C-reactive protein increased
     Route: 042
     Dates: start: 20221013, end: 20221014
  4. Rivastigmine (EXELON PATCH) [Concomitant]
     Indication: Parkinson^s disease
     Dosage: 10 MILLIGRAM
     Route: 062
  5. Amantadine Sulfate (PK MERZ) [Concomitant]
     Indication: Parkinson^s disease
     Dosage: 200 MILLIGRAM
     Route: 048
  6. Levothyroxine Sodium (EUTHYROX) [Concomitant]
     Indication: Goitre
     Dosage: 50 MICROGRAM
     Route: 048
  7. Ceftriaxone (DESEFIN) [Concomitant]
     Indication: C-reactive protein increased
     Route: 042
     Dates: start: 20221013, end: 20221014
  8. Carbidopa+Levodopa (DOPADEX ) [Concomitant]
     Indication: Parkinson^s disease
     Dosage: 50 MILLIGRAM
     Route: 048

REACTIONS (1)
  - C-reactive protein increased [Recovered/Resolved]

NARRATIVE: CASE EVENT DATE: 20221013
